FAERS Safety Report 24843226 (Version 4)
Quarter: 2025Q1

REPORT INFORMATION
  Report Type: Spontaneous
  Country: NL (occurrence: NL)
  Receive Date: 20250115
  Receipt Date: 20250301
  Transmission Date: 20250409
  Serious: Yes (Other)
  Sender: AUROBINDO
  Company Number: NL-LRB-01024301

PATIENT
  Age: 58 Year
  Sex: Female
  Weight: 77 kg

DRUGS (6)
  1. ESOMEPRAZOLE [Suspect]
     Active Substance: ESOMEPRAZOLE
     Indication: Helicobacter gastritis
     Dosage: 20 MILLIGRAM, TWO TIMES A DAY (1 PIECE TWICE A DAY)
     Route: 048
     Dates: start: 20241211, end: 20250104
  2. AMOXICILLIN [Suspect]
     Active Substance: AMOXICILLIN
     Indication: Helicobacter gastritis
     Dosage: 500 MILLIGRAM, TWO TIMES A DAY (1 PIECE TWICE A DAY, TOGETHER WITH METRONIDAZOLE)
     Route: 048
     Dates: start: 20241211
  3. METRONIDAZOLE [Suspect]
     Active Substance: METRONIDAZOLE
     Indication: Helicobacter gastritis
     Dosage: 250 MILLIGRAM, 3 TIMES A DAY (1 PIECE 3 TIMES A DAY, FOR 7 DAYS)
     Route: 048
     Dates: start: 20241211
  4. ESOMEPRAZOLE [Suspect]
     Active Substance: ESOMEPRAZOLE
     Indication: Helicobacter gastritis
     Dosage: 20 MILLIGRAM, TWO TIMES A DAY
     Route: 048
     Dates: start: 20241211, end: 20250104
  5. METRONIDAZOLE [Suspect]
     Active Substance: METRONIDAZOLE
     Indication: Helicobacter gastritis
     Dosage: 250 MILLIGRAM, 3 TIMES A DAY
     Route: 048
     Dates: start: 20241211
  6. LEVOTHYROXINE [Concomitant]
     Active Substance: LEVOTHYROXINE
     Indication: Product used for unknown indication
     Dosage: 100 MILLIGRAM, ONCE A DAY (THYROID MEDICATION 100 MG PER DAY)
     Route: 065

REACTIONS (4)
  - Depersonalisation/derealisation disorder [Not Recovered/Not Resolved]
  - Somnolence [Not Recovered/Not Resolved]
  - Dizziness [Recovering/Resolving]
  - Balance disorder [Recovering/Resolving]
